FAERS Safety Report 11188886 (Version 1)
Quarter: 2015Q2

REPORT INFORMATION
  Report Type: Spontaneous
  Country: US (occurrence: None)
  Receive Date: 20150612
  Receipt Date: 20150612
  Transmission Date: 20150821
  Serious: Yes (Hospitalization)
  Sender: FDA-Public Use
  Company Number: None

PATIENT
  Age: 69 Year
  Sex: Female
  Weight: 102 kg

DRUGS (3)
  1. TAXOL [Suspect]
     Active Substance: PACLITAXEL
     Dates: start: 20150512
  2. CARBOPLATIN. [Suspect]
     Active Substance: CARBOPLATIN
     Dates: start: 201205
  3. METFORMIN HYDROCHLORIDE. [Suspect]
     Active Substance: METFORMIN HYDROCHLORIDE
     Dates: start: 20150602

REACTIONS (8)
  - Enterococcus test positive [None]
  - Neuropathy peripheral [None]
  - Tachycardia [None]
  - Urinary tract infection [None]
  - Sepsis [None]
  - Mental status changes [None]
  - Pyrexia [None]
  - Urinary tract infection fungal [None]

NARRATIVE: CASE EVENT DATE: 20150606
